FAERS Safety Report 7700032-1 (Version None)
Quarter: 2011Q3

REPORT INFORMATION
  Report Type: 
  Country: None (occurrence: None)
  Receive Date: 20110822
  Receipt Date: 20110809
  Transmission Date: 20111222
  Serious: Yes (Other)
  Sender: FDA-Public Use
  Company Number: CA-ELI_LILLY_AND_COMPANY-CA201108002880

PATIENT
  Sex: Male
  Weight: 129 kg

DRUGS (5)
  1. SEROQUEL [Concomitant]
  2. PROCYCLID [Concomitant]
  3. ZYPREXA [Suspect]
     Indication: SCHIZOPHRENIA, PARANOID TYPE
     Dosage: 2.5 MG, EACH EVENING
     Dates: start: 19991005
  4. CLONAZEPAM [Concomitant]
  5. MODECATE [Concomitant]

REACTIONS (12)
  - MICROALBUMINURIA [None]
  - OEDEMA PERIPHERAL [None]
  - DYSPNOEA [None]
  - HYPERTENSION [None]
  - PERIPHERAL PULSE DECREASED [None]
  - DYSLIPIDAEMIA [None]
  - WEIGHT INCREASED [None]
  - DIABETES MELLITUS [None]
  - HEPATIC STEATOSIS [None]
  - SLEEP APNOEA SYNDROME [None]
  - RENAL ATROPHY [None]
  - ERECTILE DYSFUNCTION [None]
